FAERS Safety Report 23538947 (Version 4)
Quarter: 2024Q2

REPORT INFORMATION
  Report Type: Spontaneous
  Country: DE (occurrence: DE)
  Receive Date: 20240219
  Receipt Date: 20240408
  Transmission Date: 20240716
  Serious: Yes (Hospitalization)
  Sender: FDA-Public Use
  Company Number: DE-TEVA-VS-3150155

PATIENT
  Age: 56 Year
  Sex: Male

DRUGS (3)
  1. TRAMADOL [Suspect]
     Active Substance: TRAMADOL\TRAMADOL HYDROCHLORIDE
     Indication: Spinal pain
     Dosage: 600 MILLIGRAM, QD, 1/DAY
     Route: 065
  2. BUPRENORPHINE [Suspect]
     Active Substance: BUPRENORPHINE
     Indication: Spinal pain
     Dosage: UNK (PLASTER) FOR 96 HOURS. DOSE: 70
     Route: 062
     Dates: start: 202312, end: 202312
  3. FENTANYL [Suspect]
     Active Substance: FENTANYL\FENTANYL CITRATE
     Indication: Spinal pain
     Dosage: UNK
     Route: 062

REACTIONS (8)
  - Adverse drug reaction [Unknown]
  - Skin injury [Unknown]
  - Application site oedema [Unknown]
  - Pruritus [Unknown]
  - Cold sweat [Unknown]
  - Application site pustules [Unknown]
  - Drug ineffective [Unknown]
  - Overdose [Unknown]

NARRATIVE: CASE EVENT DATE: 20231201
